FAERS Safety Report 7941793 (Version 3)
Quarter: 2015Q3

REPORT INFORMATION
  Report Type: Spontaneous
  Country: US (occurrence: US)
  Receive Date: 20110512
  Receipt Date: 20150709
  Transmission Date: 20151125
  Serious: Yes (Hospitalization)
  Sender: FDA-Public Use
  Company Number: US-BAYER-2011-040254

PATIENT
  Age: 25 Year
  Sex: Female
  Weight: 113.38 kg

DRUGS (18)
  1. ECOTRIN [Concomitant]
     Active Substance: ASPIRIN
     Dosage: 325 MG, UNK
  2. FOLIC ACID. [Concomitant]
     Active Substance: FOLIC ACID
  3. NAPROXEN. [Concomitant]
     Active Substance: NAPROXEN
     Dosage: 500 MG, BID
     Dates: start: 20090222
  4. DIPHENHYDRAMINE. [Concomitant]
     Active Substance: DIPHENHYDRAMINE
     Dosage: UNK
     Dates: start: 20090220
  5. YAZ [Suspect]
     Active Substance: DROSPIRENONE\ETHINYL ESTRADIOL
     Indication: CONTRACEPTION
     Dosage: UNK
     Dates: start: 20090403, end: 200904
  6. IBUPROFEN. [Concomitant]
     Active Substance: IBUPROFEN
     Dosage: UNK
     Dates: start: 2005
  7. BUPIVACAIN [Concomitant]
     Active Substance: BUPIVACAINE
     Dosage: UNK
     Route: 008
     Dates: start: 20090220
  8. DARVOCET [Concomitant]
     Active Substance: ACETAMINOPHEN\PROPOXYPHENE HYDROCHLORIDE
     Dosage: UNK
     Dates: start: 20090220
  9. PRENATAL VITAMINS [Concomitant]
     Active Substance: VITAMINS
     Dosage: UNK
     Dates: start: 20090220
  10. TUMS [CALCIUM CARBONATE,MAGNESIUM CARBONATE] [Concomitant]
     Dosage: UNK
     Dates: start: 20090220
  11. EPINEPHRINE. [Concomitant]
     Active Substance: EPINEPHRINE
     Dosage: UNK
     Route: 008
     Dates: start: 20090220
  12. VICODIN [Concomitant]
     Active Substance: ACETAMINOPHEN\HYDROCODONE BITARTRATE
     Dosage: UNK
     Dates: start: 20090222
  13. PENICILLIN MED LIDOKAINOPPLOSNING [Concomitant]
     Dosage: UNK
     Dates: start: 20090220
  14. OXYTOCIN. [Concomitant]
     Active Substance: OXYTOCIN
     Dosage: UNK
     Route: 042
     Dates: start: 20090220
  15. FENTANYL. [Concomitant]
     Active Substance: FENTANYL
     Dosage: UNK
     Dates: start: 20090220
  16. SIMVASTATIN. [Concomitant]
     Active Substance: SIMVASTATIN
  17. ZOCOR [Concomitant]
     Active Substance: SIMVASTATIN
  18. DOCUSATE [Concomitant]
     Active Substance: DOCUSATE
     Dosage: UNK
     Dates: start: 20090221

REACTIONS (17)
  - Abnormal behaviour [None]
  - Ischaemic stroke [None]
  - Balance disorder [None]
  - Emotional distress [None]
  - Anxiety [None]
  - Cerebrovascular accident [None]
  - Vision blurred [None]
  - Injury [None]
  - Confusional state [None]
  - Hypoaesthesia [None]
  - General physical health deterioration [None]
  - Headache [None]
  - Dysarthria [None]
  - Disturbance in attention [None]
  - Pain [None]
  - Aphasia [None]
  - Fatigue [None]

NARRATIVE: CASE EVENT DATE: 200905
